FAERS Safety Report 5375327-X (Version None)
Quarter: 2007Q2

REPORT INFORMATION
  Report Type: 
  Country: None (occurrence: None)
  Receive Date: 20070629
  Receipt Date: 20070620
  Transmission Date: 20071010
  Serious: Yes (Other)
  Sender: FDA-Public Use
  Company Number: US-PFIZER INC-2005108490

PATIENT
  Sex: Female
  Weight: 53.5 kg

DRUGS (6)
  1. ZOLOFT [Suspect]
     Indication: DEPRESSION
     Route: 048
  2. ALLEGRA [Concomitant]
     Route: 065
  3. ALBUTEROL [Concomitant]
     Route: 065
  4. DENAVIR [Concomitant]
     Route: 065
  5. INTAL [Concomitant]
     Route: 065
  6. EVISTA [Concomitant]

REACTIONS (13)
  - APATHY [None]
  - ARTHRITIS [None]
  - BLOOD CHOLESTEROL INCREASED [None]
  - BRADYPHRENIA [None]
  - COGNITIVE DISORDER [None]
  - FEELING ABNORMAL [None]
  - HEADACHE [None]
  - HORMONE LEVEL ABNORMAL [None]
  - HYPOAESTHESIA [None]
  - MEMORY IMPAIRMENT [None]
  - MENTAL IMPAIRMENT [None]
  - THROMBOSIS [None]
  - WEIGHT INCREASED [None]
